FAERS Safety Report 4320085-0 (Version None)
Quarter: 2004Q1

REPORT INFORMATION
  Report Type: 
  Country: None (occurrence: None)
  Receive Date: 20040317
  Receipt Date: 20040303
  Transmission Date: 20041129
  Serious: Yes (Hospitalization)
  Sender: FDA-Public Use
  Company Number: 2004015948

PATIENT
  Age: 60 Year
  Sex: Male
  Weight: 93.9 kg

DRUGS (6)
  1. NORVASC [Suspect]
     Indication: ILL-DEFINED DISORDER
     Dosage: ORAL
     Route: 048
     Dates: start: 20020926, end: 20040226
  2. METOPROLOL [Concomitant]
  3. ASPIRIN [Concomitant]
  4. BUPROPION HYDROCHLORIDE [Concomitant]
  5. CITALOPRAM HYDROBROMIDE [Concomitant]
  6. ATORVASTATIN [Concomitant]

REACTIONS (1)
  - INTENTIONAL OVERDOSE [None]
